FAERS Safety Report 15408013 (Version 1)
Quarter: 2018Q3

REPORT INFORMATION
  Report Type: Spontaneous
  Country: FR (occurrence: FR)
  Receive Date: 20180920
  Receipt Date: 20180920
  Transmission Date: 20181010
  Serious: Yes (Hospitalization, Other)
  Sender: FDA-Public Use
  Company Number: FR-JNJFOC-20180912511

PATIENT
  Age: 15 Year
  Sex: Female

DRUGS (1)
  1. TRAMADOL HYDROCHLORIDE. [Suspect]
     Active Substance: TRAMADOL HYDROCHLORIDE
     Indication: PRODUCT USED FOR UNKNOWN INDICATION
     Route: 065

REACTIONS (5)
  - Poisoning [Recovered/Resolved]
  - Seizure [Recovered/Resolved]
  - Intentional overdose [Recovered/Resolved]
  - Hepatocellular injury [Unknown]
  - Apnoea [Recovered/Resolved]
